FAERS Safety Report 4390066-X (Version None)
Quarter: 2004Q3

REPORT INFORMATION
  Report Type: 
  Country: None (occurrence: None)
  Receive Date: 20040706
  Receipt Date: 20040623
  Transmission Date: 20050211
  Serious: Yes (Hospitalization, Other)
  Sender: FDA-Public Use
  Company Number: FR-BRISTOL-MYERS SQUIBB COMPANY-12623880

PATIENT
  Age: 63 Year
  Sex: Male

DRUGS (9)
  1. COUMADIN [Suspect]
     Indication: CARDIAC FAILURE
     Route: 048
     Dates: end: 20040501
  2. ZOCOR [Interacting]
     Indication: HYPERLIPIDAEMIA
     Route: 048
  3. ALLOPURINOL TAB [Interacting]
     Indication: GOUT
     Route: 048
     Dates: end: 20040501
  4. ASPIRIN [Interacting]
     Indication: CIRCULATING ANTICOAGULANT
     Route: 048
     Dates: end: 20040501
  5. CARDENSIEL [Concomitant]
  6. XATRAL [Concomitant]
  7. ZESTRIL [Concomitant]
  8. MOPRAL [Concomitant]
  9. LASILIX [Concomitant]

REACTIONS (5)
  - ATRIAL FIBRILLATION [None]
  - DRUG INTERACTION [None]
  - GINGIVAL BLEEDING [None]
  - INTERNATIONAL NORMALISED RATIO ABNORMAL [None]
  - OVERDOSE [None]
